APPROVED DRUG PRODUCT: LIDOCAINE HYDROCHLORIDE 0.2% IN DEXTROSE 5%
Active Ingredient: LIDOCAINE HYDROCHLORIDE
Strength: 200MG/100ML
Dosage Form/Route: INJECTABLE;INJECTION
Application: A083158 | Product #005
Applicant: HOSPIRA INC
Approved: Approved Prior to Jan 1, 1982 | RLD: No | RS: No | Type: DISCN